FAERS Safety Report 7233243-2 (Version None)
Quarter: 2011Q1

REPORT INFORMATION
  Report Type: 
  Country: None (occurrence: None)
  Receive Date: 20110119
  Receipt Date: 20110114
  Transmission Date: 20110831
  Serious: Yes (Hospitalization)
  Sender: FDA-Public Use
  Company Number: B0664897A

PATIENT
  Sex: Female

DRUGS (9)
  1. DALACIN [Suspect]
     Indication: PNEUMONIA
     Dosage: 720MG PER DAY
     Route: 065
     Dates: start: 20100701, end: 20100707
  2. PHENOBAL [Concomitant]
     Indication: EPILEPSY
     Dosage: 70MG PER DAY
     Route: 065
     Dates: start: 19980101
  3. LAMICTAL [Suspect]
     Indication: EPILEPSY
     Dosage: 12MG PER DAY
     Route: 048
     Dates: start: 20100621, end: 20100707
  4. ALEVIATIN [Concomitant]
     Indication: EPILEPSY
     Dosage: 120MG PER DAY
     Route: 065
     Dates: start: 20091201
  5. MODACIN [Suspect]
     Indication: PNEUMONIA
     Dosage: 2400MG PER DAY
     Route: 042
     Dates: start: 20100629, end: 20100704
  6. TEGRETOL [Concomitant]
     Indication: EPILEPSY
     Dosage: 280MG PER DAY
     Route: 048
     Dates: start: 19980101, end: 20100706
  7. MYSTAN [Concomitant]
     Indication: EPILEPSY
     Dosage: 4MG PER DAY
     Route: 048
  8. FIRSTCIN [Concomitant]
     Dosage: 1200MG PER DAY
     Route: 042
     Dates: start: 20100705
  9. MINOMYCIN [Concomitant]
     Dosage: 70MG PER DAY
     Route: 065
     Dates: start: 20100707

REACTIONS (11)
  - RASH ERYTHEMATOUS [None]
  - ERYTHEMA [None]
  - STEVENS-JOHNSON SYNDROME [None]
  - CONJUNCTIVAL HYPERAEMIA [None]
  - RASH [None]
  - EYELID OEDEMA [None]
  - RETINITIS [None]
  - PNEUMONIA [None]
  - C-REACTIVE PROTEIN INCREASED [None]
  - PYREXIA [None]
  - ORAL MUCOSAL ERYTHEMA [None]
